FAERS Safety Report 22272947 (Version 5)
Quarter: 2023Q4

REPORT INFORMATION
  Report Type: Spontaneous
  Country: CA (occurrence: CA)
  Receive Date: 20230502
  Receipt Date: 20231117
  Transmission Date: 20240109
  Serious: Yes (Other)
  Sender: FDA-Public Use
  Company Number: CA-CELLTRION INC.-2022CA007360

PATIENT

DRUGS (8)
  1. INFLECTRA [Suspect]
     Active Substance: INFLIXIMAB-DYYB
     Indication: Behcet^s syndrome
     Dosage: 600 MG EVERY 6 WEEK
     Route: 042
     Dates: start: 20220422
  2. INFLECTRA [Suspect]
     Active Substance: INFLIXIMAB-DYYB
     Dosage: 600 MG EVERY 6 WEEKS
     Route: 042
     Dates: start: 20220713
  3. INFLECTRA [Suspect]
     Active Substance: INFLIXIMAB-DYYB
     Dosage: 600 MG EVERY 6 WEEKS
     Route: 042
     Dates: start: 20220713
  4. INFLECTRA [Suspect]
     Active Substance: INFLIXIMAB-DYYB
     Dosage: 600 MG EVERY 6 WEEK
     Route: 042
     Dates: start: 2022
  5. INFLECTRA [Suspect]
     Active Substance: INFLIXIMAB-DYYB
     Dosage: 600 MG, FREQUENCY: 6 WEEKS
     Route: 042
     Dates: start: 20230223
  6. INFLECTRA [Suspect]
     Active Substance: INFLIXIMAB-DYYB
     Dosage: 600 MG EVERY 6 WEEKS
     Route: 042
     Dates: start: 20230323
  7. INFLECTRA [Suspect]
     Active Substance: INFLIXIMAB-DYYB
     Dosage: 600 MG EVERY 6 WEEKS
     Route: 042
     Dates: start: 20230609
  8. INFLECTRA [Suspect]
     Active Substance: INFLIXIMAB-DYYB
     Dosage: 600 MG EVERY 6 WEEKS
     Route: 042
     Dates: start: 20230609

REACTIONS (6)
  - Metabolic disorder [Unknown]
  - Wound infection [Unknown]
  - Weight decreased [Unknown]
  - Drug effective for unapproved indication [Unknown]
  - Off label use [Unknown]
  - Inappropriate schedule of product administration [Unknown]

NARRATIVE: CASE EVENT DATE: 20220713
